FAERS Safety Report 7367576-6 (Version None)
Quarter: 2011Q1

REPORT INFORMATION
  Report Type: 
  Country: None (occurrence: None)
  Receive Date: 20110314
  Receipt Date: 20110304
  Transmission Date: 20110831
  Serious: Yes (Hospitalization, Other)
  Sender: FDA-Public Use
  Company Number: 2011SP009255

PATIENT
  Age: 78 Year
  Sex: Female

DRUGS (5)
  1. KAJOS [Concomitant]
  2. REMERON (MIRTAZAPINE / 01293201/ ) [Suspect]
     Indication: DEPRESSION
     Dosage: 15 MG; QD, 30 MG; QD; PO
     Route: 048
     Dates: start: 20100706, end: 20100720
  3. REMERON (MIRTAZAPINE / 01293201/ ) [Suspect]
     Indication: DEPRESSION
     Dosage: 15 MG; QD, 30 MG; QD; PO
     Route: 048
     Dates: end: 20100706
  4. TIMOSAN [Concomitant]
  5. XALATAN [Concomitant]

REACTIONS (1)
  - DIARRHOEA [None]
